FAERS Safety Report 19808537 (Version 2)
Quarter: 2022Q1

REPORT INFORMATION
  Report Type: Spontaneous
  Country: CA (occurrence: CA)
  Receive Date: 20210908
  Receipt Date: 20220218
  Transmission Date: 20220424
  Serious: Yes (Death, Hospitalization)
  Sender: FDA-Public Use
  Company Number: CA-PFIZER INC-202101116778

PATIENT
  Age: 48 Year
  Sex: Male

DRUGS (21)
  1. GEMCITABINE HYDROCHLORIDE [Suspect]
     Active Substance: GEMCITABINE HYDROCHLORIDE
     Indication: Pancreatic carcinoma
     Dosage: 2350 MG, CYCLIC (1 EVERY 4 WEEKS)
     Route: 042
  2. ABRAXANE [Suspect]
     Active Substance: PACLITAXEL
     Indication: Pancreatic carcinoma
     Dosage: 294 MG, CYCLIC (1 EVERY 4 WEEKS)
     Route: 042
  3. DURVALUMAB [Suspect]
     Active Substance: DURVALUMAB
     Indication: Pancreatic carcinoma
     Dosage: 1500 MG, CYCLIC (1 EVERY 4 WEEKS)
     Route: 042
  4. TREMELIMUMAB [Suspect]
     Active Substance: TREMELIMUMAB
     Indication: Pancreatic carcinoma
     Dosage: 75 MG, CYCLIC (1 EVERY 4 WEEKS)
     Route: 042
  5. DICLOFENAC [Concomitant]
     Active Substance: DICLOFENAC
     Indication: Analgesic intervention supportive therapy
     Dosage: UNK
  6. DILAUDID [Concomitant]
     Active Substance: HYDROMORPHONE HYDROCHLORIDE
     Indication: Abdominal pain
  7. DULCOLAX (BISACODYL) [Concomitant]
     Active Substance: BISACODYL
     Indication: Constipation
  8. GRAVOL [Concomitant]
     Active Substance: DIMENHYDRINATE
     Indication: Prophylaxis of nausea and vomiting
  9. HUMALOG [Concomitant]
     Active Substance: INSULIN LISPRO
     Indication: Diabetes mellitus
  10. INSULIN NOS [Concomitant]
     Active Substance: INSULIN NOS
     Indication: Prophylaxis of nausea and vomiting
  11. METFORMIN [Concomitant]
     Active Substance: METFORMIN HYDROCHLORIDE
     Indication: Diabetes mellitus
  12. METOCLOPRAMIDE HYDROCHLORIDE [Concomitant]
     Active Substance: METOCLOPRAMIDE HYDROCHLORIDE
     Indication: Prophylaxis of nausea and vomiting
  13. PANCREATIN [Concomitant]
     Active Substance: PANCRELIPASE
     Indication: Nutritional supplementation
  14. PREDNISONE [Concomitant]
     Active Substance: PREDNISONE
     Indication: Analgesic intervention supportive therapy
  15. PREDNISONE [Concomitant]
     Active Substance: PREDNISONE
     Dosage: 50 MG, 1X/DAY
  16. PREDNISONE [Concomitant]
     Active Substance: PREDNISONE
     Dosage: 25 MG, 1X/DAY
  17. RABEPRAZOLE [Concomitant]
     Active Substance: RABEPRAZOLE
     Indication: Gastrooesophageal reflux disease
  18. RABEPRAZOLE [Concomitant]
     Active Substance: RABEPRAZOLE
     Indication: Dyspepsia
     Route: 065
  19. SENOKOT [Concomitant]
     Active Substance: SENNOSIDES
     Indication: Constipation
  20. VENTOLIN [Concomitant]
     Active Substance: ALBUTEROL SULFATE
     Indication: Dyspnoea
  21. ZOPICLONE [Concomitant]
     Active Substance: ZOPICLONE
     Indication: Insomnia

REACTIONS (4)
  - Cerebrovascular accident [Fatal]
  - Dyspnoea [Fatal]
  - Muscular weakness [Fatal]
  - Pneumonitis [Fatal]
